FAERS Safety Report 8389698-3 (Version None)
Quarter: 2012Q2

REPORT INFORMATION
  Report Type: 
  Country: None (occurrence: None)
  Receive Date: 20120529
  Receipt Date: 20120519
  Transmission Date: 20120825
  Serious: Yes (Other)
  Sender: FDA-Public Use
  Company Number: BE-PAR PHARMACEUTICAL, INC-2012SCPR004394

PATIENT

DRUGS (6)
  1. DEXAMETHASONE [Suspect]
     Indication: MENINGITIS BACTERIAL
     Dosage: UNK, UNKNOWN
     Route: 065
  2. DEXAMETHASONE [Suspect]
     Indication: STREPTOCOCCAL INFECTION
  3. ANTIBIOTICS [Concomitant]
     Indication: STREPTOCOCCAL INFECTION
  4. PHENYTOIN [Suspect]
     Indication: MENINGITIS BACTERIAL
     Dosage: UNK, UNKNOWN
     Route: 065
  5. PHENYTOIN [Suspect]
     Indication: STREPTOCOCCAL INFECTION
  6. ANTIBIOTICS [Concomitant]
     Indication: MENINGITIS BACTERIAL
     Dosage: UNK, UNKNOWN
     Route: 065

REACTIONS (4)
  - IMMUNOSUPPRESSION [None]
  - EPSTEIN-BARR VIRUS INFECTION [None]
  - DRUG RASH WITH EOSINOPHILIA AND SYSTEMIC SYMPTOMS [None]
  - HUMAN HERPESVIRUS 6 INFECTION [None]
